FAERS Safety Report 4630305-0 (Version None)
Quarter: 2005Q2

REPORT INFORMATION
  Report Type: 
  Country: None (occurrence: None)
  Receive Date: 20050408
  Receipt Date: 20050309
  Transmission Date: 20051028
  Serious: Yes (Other)
  Sender: FDA-Public Use
  Company Number: 200512294GDDC

PATIENT
  Sex: Female

DRUGS (2)
  1. ENOXAPARIN SODIUM [Suspect]
     Indication: HABITUAL ABORTION
     Dosage: DOSE: UNK
     Route: 058
  2. ENOXAPARIN SODIUM [Suspect]
     Indication: HYPERCOAGULATION
     Dosage: DOSE: UNK
     Route: 058

REACTIONS (3)
  - ALOPECIA [None]
  - ALOPECIA TOTALIS [None]
  - DRUG EXPOSURE DURING PREGNANCY [None]
